FAERS Safety Report 17026043 (Version 1)
Quarter: 2019Q4

REPORT INFORMATION
  Report Type: Spontaneous
  Country: AT (occurrence: AT)
  Receive Date: 20191113
  Receipt Date: 20191113
  Transmission Date: 20200122
  Serious: Yes (Hospitalization, Other)
  Sender: FDA-Public Use
  Company Number: AT-REGENERON PHARMACEUTICALS, INC.-2019-65941

PATIENT

DRUGS (3)
  1. LIBTAYO [Suspect]
     Active Substance: CEMIPLIMAB-RWLC
     Dosage: 350 MG, Q3W
     Route: 065
     Dates: start: 20190706, end: 20190706
  2. LIBTAYO [Suspect]
     Active Substance: CEMIPLIMAB-RWLC
     Indication: PRODUCT USED FOR UNKNOWN INDICATION
     Dosage: 350 MG, Q3W
     Route: 065
     Dates: start: 20190614, end: 20190614
  3. LIBTAYO [Suspect]
     Active Substance: CEMIPLIMAB-RWLC
     Dosage: 350 MG, Q3W
     Route: 065
     Dates: start: 20190726, end: 20190726

REACTIONS (10)
  - Hepatitis [Unknown]
  - General physical health deterioration [Unknown]
  - Rash maculo-papular [Unknown]
  - Transaminases increased [Recovering/Resolving]
  - Rash [Unknown]
  - Rash [Recovering/Resolving]
  - Pyrexia [Recovering/Resolving]
  - Pain in extremity [Unknown]
  - Cough [Unknown]
  - Mucosal disorder [Recovering/Resolving]

NARRATIVE: CASE EVENT DATE: 2019
